FAERS Safety Report 12882550 (Version 1)
Quarter: 2016Q4

REPORT INFORMATION
  Report Type: Report from Study
  Country: BE (occurrence: BE)
  Receive Date: 20161025
  Receipt Date: 20161025
  Transmission Date: 20170207
  Serious: Yes (Hospitalization)
  Sender: FDA-Public Use
  Company Number: BE-BAYER-2016-200595

PATIENT
  Sex: Female

DRUGS (5)
  1. CORDARONE [Concomitant]
     Active Substance: AMIODARONE HYDROCHLORIDE
     Dosage: 200 MG, UNK
  2. NEXAVAR [Suspect]
     Active Substance: SORAFENIB
     Indication: HEPATOCELLULAR CARCINOMA
     Dosage: DAILY DOSE 400 MG
     Dates: start: 20161007, end: 20161016
  3. ALDACTONE [Concomitant]
     Active Substance: SPIRONOLACTONE
     Dosage: 25 MG, UNK
  4. PROMAGNOR [Concomitant]
     Dosage: UNK
  5. BURINEX [Concomitant]
     Active Substance: BUMETANIDE
     Dosage: 5 MG, UNK

REACTIONS (6)
  - Asthenia [None]
  - Nausea [None]
  - Vomiting [None]
  - Decreased appetite [None]
  - Fatigue [None]
  - Dysstasia [None]

NARRATIVE: CASE EVENT DATE: 20161009
